FAERS Safety Report 7214161-2 (Version None)
Quarter: 2011Q1

REPORT INFORMATION
  Report Type: 
  Country: None (occurrence: None)
  Receive Date: 20110107
  Receipt Date: 20101227
  Transmission Date: 20110831
  Serious: Yes (Hospitalization, Other)
  Sender: FDA-Public Use
  Company Number: JP-JNJFOC-20100705668

PATIENT
  Sex: Female
  Weight: 58 kg

DRUGS (10)
  1. KENALOG [Concomitant]
  2. ETODOLAC [Concomitant]
     Indication: RHEUMATOID ARTHRITIS
     Route: 048
  3. PREDNISOLONE [Concomitant]
     Indication: RHEUMATOID ARTHRITIS
     Route: 048
  4. REMICADE [Suspect]
     Dosage: DOSES 1 TO 29
     Route: 042
  5. METHOTREXATE [Suspect]
     Indication: RHEUMATOID ARTHRITIS
     Route: 048
  6. BONALON [Concomitant]
     Indication: OSTEOPOROSIS
     Route: 048
  7. REMICADE [Suspect]
     Route: 042
  8. ALDIOXA [Concomitant]
     Indication: GASTRITIS
     Route: 048
  9. REMICADE [Suspect]
     Indication: RHEUMATOID ARTHRITIS
     Route: 042
  10. RANITIDINE HYDROCHLORIDE [Concomitant]
     Indication: GASTRITIS
     Route: 048

REACTIONS (2)
  - APHTHOUS STOMATITIS [None]
  - TONGUE NEOPLASM MALIGNANT STAGE UNSPECIFIED [None]
